FAERS Safety Report 25817074 (Version 3)
Quarter: 2025Q4

REPORT INFORMATION
  Report Type: Spontaneous
  Country: EU (occurrence: EU)
  Receive Date: 20250918
  Receipt Date: 20251028
  Transmission Date: 20260117
  Serious: Yes (Hospitalization, Other)
  Sender: MYLAN
  Company Number: EU-BAXTER-2025BAX020751

PATIENT
  Age: 43 Year
  Sex: Female

DRUGS (32)
  1. DOCETAXEL [Suspect]
     Active Substance: DOCETAXEL
     Indication: Triple negative breast cancer
     Dosage: UNK, CYCLE (THREE TIMES)
     Dates: start: 2016
  2. DOCETAXEL [Suspect]
     Active Substance: DOCETAXEL
     Indication: Invasive ductal breast carcinoma
     Dosage: UNK, CYCLE (THREE TIMES)
     Route: 065
     Dates: start: 2016
  3. DOCETAXEL [Suspect]
     Active Substance: DOCETAXEL
     Dosage: UNK, CYCLE (THREE TIMES)
     Route: 065
     Dates: start: 2016
  4. DOCETAXEL [Suspect]
     Active Substance: DOCETAXEL
     Dosage: UNK, CYCLE (THREE TIMES)
     Dates: start: 2016
  5. CAPECITABINE [Suspect]
     Active Substance: CAPECITABINE
     Indication: Triple negative breast cancer
     Dosage: UNK, CYCLE (FIRST CYCLE OF CEX, 4 TIMES)
     Dates: start: 2016
  6. CAPECITABINE [Suspect]
     Active Substance: CAPECITABINE
     Indication: Invasive ductal breast carcinoma
     Dosage: UNK, CYCLE (FIRST CYCLE OF CEX, 4 TIMES)
     Dates: start: 2016
  7. CAPECITABINE [Suspect]
     Active Substance: CAPECITABINE
     Dosage: UNK, CYCLE (FIRST CYCLE OF CEX, 4 TIMES)
     Route: 065
     Dates: start: 2016
  8. CAPECITABINE [Suspect]
     Active Substance: CAPECITABINE
     Dosage: UNK, CYCLE (FIRST CYCLE OF CEX, 4 TIMES)
     Route: 065
     Dates: start: 2016
  9. CAPECITABINE [Suspect]
     Active Substance: CAPECITABINE
     Dosage: UNK (DOSE REDUCED)
  10. CAPECITABINE [Suspect]
     Active Substance: CAPECITABINE
     Dosage: UNK (DOSE REDUCED)
  11. CAPECITABINE [Suspect]
     Active Substance: CAPECITABINE
     Dosage: UNK (DOSE REDUCED)
     Route: 065
  12. CAPECITABINE [Suspect]
     Active Substance: CAPECITABINE
     Dosage: UNK (DOSE REDUCED)
     Route: 065
  13. EPIRUBICIN [Suspect]
     Active Substance: EPIRUBICIN
     Indication: Triple negative breast cancer
     Dosage: UNK, CYCLE (FIRST CYCLE OF CEX)
  14. EPIRUBICIN [Suspect]
     Active Substance: EPIRUBICIN
     Dosage: UNK, CYCLE (FIRST CYCLE OF CEX)
     Route: 065
  15. EPIRUBICIN [Suspect]
     Active Substance: EPIRUBICIN
     Dosage: UNK, CYCLE (FIRST CYCLE OF CEX)
     Route: 065
  16. EPIRUBICIN [Suspect]
     Active Substance: EPIRUBICIN
     Dosage: UNK, CYCLE (FIRST CYCLE OF CEX)
  17. FLUOROURACIL [Suspect]
     Active Substance: FLUOROURACIL
     Indication: Triple negative breast cancer
     Dosage: UNK, CYCLE (THREE TIMES)
  18. FLUOROURACIL [Suspect]
     Active Substance: FLUOROURACIL
     Dosage: UNK, CYCLE (THREE TIMES)
     Route: 065
  19. FLUOROURACIL [Suspect]
     Active Substance: FLUOROURACIL
     Dosage: UNK, CYCLE (THREE TIMES)
     Route: 065
  20. FLUOROURACIL [Suspect]
     Active Substance: FLUOROURACIL
     Dosage: UNK, CYCLE (THREE TIMES)
  21. CYCLOPHOSPHAMIDE [Suspect]
     Active Substance: CYCLOPHOSPHAMIDE
     Indication: Triple negative breast cancer
     Dosage: UNK, CYCLE (FIRST CYCLE OF CEX, INITIALLY WITHDRAWN LATER THERAPY RESTARTED, DOSE-DENSE CYCLES)
  22. CYCLOPHOSPHAMIDE [Suspect]
     Active Substance: CYCLOPHOSPHAMIDE
     Dosage: UNK, CYCLE (FIRST CYCLE OF CEX, INITIALLY WITHDRAWN LATER THERAPY RESTARTED, DOSE-DENSE CYCLES)
  23. CYCLOPHOSPHAMIDE [Suspect]
     Active Substance: CYCLOPHOSPHAMIDE
     Dosage: UNK, CYCLE (FIRST CYCLE OF CEX, INITIALLY WITHDRAWN LATER THERAPY RESTARTED, DOSE-DENSE CYCLES)
     Route: 065
  24. CYCLOPHOSPHAMIDE [Suspect]
     Active Substance: CYCLOPHOSPHAMIDE
     Dosage: UNK, CYCLE (FIRST CYCLE OF CEX, INITIALLY WITHDRAWN LATER THERAPY RESTARTED, DOSE-DENSE CYCLES)
     Route: 065
  25. CYCLOPHOSPHAMIDE [Suspect]
     Active Substance: CYCLOPHOSPHAMIDE
     Dosage: UNK
  26. CYCLOPHOSPHAMIDE [Suspect]
     Active Substance: CYCLOPHOSPHAMIDE
     Dosage: UNK
  27. CYCLOPHOSPHAMIDE [Suspect]
     Active Substance: CYCLOPHOSPHAMIDE
     Dosage: UNK
     Route: 065
  28. CYCLOPHOSPHAMIDE [Suspect]
     Active Substance: CYCLOPHOSPHAMIDE
     Dosage: UNK
     Route: 065
  29. DOXORUBICIN [Suspect]
     Active Substance: DOXORUBICIN
     Indication: Triple negative breast cancer
     Dosage: UNK, CYCLE (DOSE-DENSE CYCLES)
  30. DOXORUBICIN [Suspect]
     Active Substance: DOXORUBICIN
     Dosage: UNK, CYCLE (DOSE-DENSE CYCLES)
     Route: 065
  31. DOXORUBICIN [Suspect]
     Active Substance: DOXORUBICIN
     Dosage: UNK, CYCLE (DOSE-DENSE CYCLES)
     Route: 065
  32. DOXORUBICIN [Suspect]
     Active Substance: DOXORUBICIN
     Dosage: UNK, CYCLE (DOSE-DENSE CYCLES)

REACTIONS (10)
  - Toxicity to various agents [Unknown]
  - Neutropenic infection [Unknown]
  - Neutropenia [Unknown]
  - Sepsis [Unknown]
  - Pyrexia [Unknown]
  - Diarrhoea [Unknown]
  - Abdominal pain upper [Unknown]
  - Premature menopause [Unknown]
  - Oligomenorrhoea [Unknown]
  - Blood follicle stimulating hormone increased [Unknown]

NARRATIVE: CASE EVENT DATE: 20160101
